FAERS Safety Report 5660945-1 (Version None)
Quarter: 2008Q1

REPORT INFORMATION
  Report Type: 
  Country: None (occurrence: None)
  Receive Date: 20080311
  Receipt Date: 20080228
  Transmission Date: 20080703
  Serious: Yes (Hospitalization, Other)
  Sender: FDA-Public Use
  Company Number: US-PFIZER INC-2006062874

PATIENT
  Sex: Female
  Weight: 112 kg

DRUGS (10)
  1. SUTENT [Suspect]
     Indication: RENAL CELL CARCINOMA
     Route: 048
  2. SUTENT [Suspect]
     Route: 048
     Dates: start: 20060412, end: 20060509
  3. SUTENT [Suspect]
     Route: 048
     Dates: start: 20060524, end: 20060620
  4. SUTENT [Suspect]
     Route: 048
  5. PAROXETINE HCL [Concomitant]
     Indication: DEPRESSION
     Route: 048
  6. ACETAMINOPHEN [Concomitant]
     Indication: ARTHRITIS
     Route: 048
  7. ASPIRIN [Concomitant]
     Indication: PAIN
     Route: 048
  8. ASPIRIN [Concomitant]
  9. MAALOX [Concomitant]
     Indication: GASTROOESOPHAGEAL REFLUX DISEASE
     Route: 048
  10. OMEPRAZOLE [Concomitant]
     Indication: GASTROOESOPHAGEAL REFLUX DISEASE
     Route: 048

REACTIONS (23)
  - ABDOMINAL PAIN UPPER [None]
  - ANAEMIA [None]
  - ANOREXIA [None]
  - BILIARY TRACT DISORDER [None]
  - CYTOMEGALOVIRUS INFECTION [None]
  - DIARRHOEA [None]
  - DYSGEUSIA [None]
  - EATING DISORDER [None]
  - FATIGUE [None]
  - FUNGAL INFECTION [None]
  - GASTROINTESTINAL INFLAMMATION [None]
  - HYPOKALAEMIA [None]
  - HYPONATRAEMIA [None]
  - HYPOTHYROIDISM [None]
  - HYPOVOLAEMIA [None]
  - MENTAL STATUS CHANGES [None]
  - NAUSEA [None]
  - PAIN [None]
  - PEPTIC ULCER [None]
  - PLEURAL EFFUSION [None]
  - PNEUMONIA [None]
  - PROTHROMBIN TIME PROLONGED [None]
  - URINARY TRACT INFECTION [None]
